FAERS Safety Report 25069962 (Version 2)
Quarter: 2025Q1

REPORT INFORMATION
  Report Type: Spontaneous
  Country: ES (occurrence: ES)
  Receive Date: 20250312
  Receipt Date: 20250314
  Transmission Date: 20250409
  Serious: Yes (Life-Threatening, Hospitalization)
  Sender: MYLAN
  Company Number: None

PATIENT
  Age: 52 Year
  Sex: Female

DRUGS (24)
  1. LYRICA [Interacting]
     Active Substance: PREGABALIN
     Indication: Alcohol use disorder
     Dates: start: 20241118, end: 20241118
  2. LYRICA [Interacting]
     Active Substance: PREGABALIN
     Route: 048
     Dates: start: 20241118, end: 20241118
  3. LYRICA [Interacting]
     Active Substance: PREGABALIN
     Route: 048
     Dates: start: 20241118, end: 20241118
  4. LYRICA [Interacting]
     Active Substance: PREGABALIN
     Dates: start: 20241118, end: 20241118
  5. FLUOXETINE [Interacting]
     Active Substance: FLUOXETINE HYDROCHLORIDE
     Indication: Anxiety disorder
     Dates: start: 20241118, end: 20241118
  6. FLUOXETINE [Interacting]
     Active Substance: FLUOXETINE HYDROCHLORIDE
     Route: 048
     Dates: start: 20241118, end: 20241118
  7. FLUOXETINE [Interacting]
     Active Substance: FLUOXETINE HYDROCHLORIDE
     Route: 048
     Dates: start: 20241118, end: 20241118
  8. FLUOXETINE [Interacting]
     Active Substance: FLUOXETINE HYDROCHLORIDE
     Dates: start: 20241118, end: 20241118
  9. IBUPROFEN [Interacting]
     Active Substance: IBUPROFEN
     Indication: Pain
     Dates: start: 20241118, end: 20241118
  10. IBUPROFEN [Interacting]
     Active Substance: IBUPROFEN
     Route: 048
     Dates: start: 20241118, end: 20241118
  11. IBUPROFEN [Interacting]
     Active Substance: IBUPROFEN
     Route: 048
     Dates: start: 20241118, end: 20241118
  12. IBUPROFEN [Interacting]
     Active Substance: IBUPROFEN
     Dates: start: 20241118, end: 20241118
  13. VENLAFAXINE [Interacting]
     Active Substance: VENLAFAXINE HYDROCHLORIDE
     Indication: Depression
     Dates: start: 20241118, end: 20241118
  14. VENLAFAXINE [Interacting]
     Active Substance: VENLAFAXINE HYDROCHLORIDE
     Route: 048
     Dates: start: 20241118, end: 20241118
  15. VENLAFAXINE [Interacting]
     Active Substance: VENLAFAXINE HYDROCHLORIDE
     Route: 048
     Dates: start: 20241118, end: 20241118
  16. VENLAFAXINE [Interacting]
     Active Substance: VENLAFAXINE HYDROCHLORIDE
     Dates: start: 20241118, end: 20241118
  17. LORMETAZEPAM [Interacting]
     Active Substance: LORMETAZEPAM
     Indication: Anxiety disorder
     Dates: start: 20241118, end: 20241118
  18. LORMETAZEPAM [Interacting]
     Active Substance: LORMETAZEPAM
     Route: 048
     Dates: start: 20241118, end: 20241118
  19. LORMETAZEPAM [Interacting]
     Active Substance: LORMETAZEPAM
     Route: 048
     Dates: start: 20241118, end: 20241118
  20. LORMETAZEPAM [Interacting]
     Active Substance: LORMETAZEPAM
     Dates: start: 20241118, end: 20241118
  21. CLONAZEPAM [Interacting]
     Active Substance: CLONAZEPAM
     Indication: Anxiety disorder
     Dates: start: 20241118, end: 20241118
  22. CLONAZEPAM [Interacting]
     Active Substance: CLONAZEPAM
     Route: 048
     Dates: start: 20241118, end: 20241118
  23. CLONAZEPAM [Interacting]
     Active Substance: CLONAZEPAM
     Route: 048
     Dates: start: 20241118, end: 20241118
  24. CLONAZEPAM [Interacting]
     Active Substance: CLONAZEPAM
     Dates: start: 20241118, end: 20241118

REACTIONS (3)
  - Suicide attempt [Recovered/Resolved]
  - Depressed level of consciousness [Recovered/Resolved]
  - Drug interaction [Unknown]

NARRATIVE: CASE EVENT DATE: 20241118
